FAERS Safety Report 5858497-6 (Version None)
Quarter: 2008Q3

REPORT INFORMATION
  Report Type: 
  Country: None (occurrence: None)
  Receive Date: 20080826
  Receipt Date: 20080818
  Transmission Date: 20090109
  Serious: Yes (Other)
  Sender: FDA-Public Use
  Company Number: US-JNJFOC-20080804361

PATIENT
  Sex: Female
  Weight: 56.7 kg

DRUGS (4)
  1. TOPAMAX [Suspect]
     Indication: MIGRAINE PROPHYLAXIS
     Route: 048
  2. DILANTIN [Concomitant]
     Indication: DRUG USE FOR UNKNOWN INDICATION
  3. PHENOBARBITAL TAB [Concomitant]
     Indication: DRUG USE FOR UNKNOWN INDICATION
  4. IMITREX [Concomitant]
     Indication: MIGRAINE

REACTIONS (4)
  - EYE PAIN [None]
  - HEADACHE [None]
  - MYODESOPSIA [None]
  - PHOTOPSIA [None]
